FAERS Safety Report 4514513-5 (Version None)
Quarter: 2004Q3

REPORT INFORMATION
  Report Type: 
  Country: None (occurrence: None)
  Receive Date: 20040928
  Receipt Date: 20040706
  Transmission Date: 20050211
  Serious: No
  Sender: FDA-Public Use
  Company Number: 04P-163-0265965-00

PATIENT
  Age: 44 Year
  Sex: Female
  Weight: 81.6475 kg

DRUGS (9)
  1. HUMIRA [Suspect]
     Indication: RHEUMATOID ARTHRITIS
     Dosage: 40 MG,  1IN 2 WK, SUBCUTANEOUS
     Route: 058
     Dates: start: 20040531
  2. METHOTREXATE [Concomitant]
  3. CELECOXIB [Concomitant]
  4. FOLIC ACID [Concomitant]
  5. MOEXIPRIL HYDROCHLORIDE [Concomitant]
  6. HYDROCHLOROTHIAZIDE [Concomitant]
  7. VENLAFAXINE HYDROCHLORIDE [Concomitant]
  8. CLORAZEPATE DIPOTASSIUM [Concomitant]
  9. HYDROXYZINE HYDROCHLORIDE [Concomitant]

REACTIONS (2)
  - INJECTION SITE BURNING [None]
  - NEURODERMATITIS [None]
